FAERS Safety Report 19502309 (Version 1)
Quarter: 2021Q3

REPORT INFORMATION
  Report Type: Spontaneous
  Country: DE (occurrence: DE)
  Receive Date: 20210707
  Receipt Date: 20210707
  Transmission Date: 20211014
  Serious: Yes (Hospitalization)
  Sender: FDA-Public Use
  Company Number: DE-TEVA-2021-DE-1929446

PATIENT
  Age: 70 Year
  Sex: Male
  Weight: 95 kg

DRUGS (9)
  1. INSULIN DETEMIR [Suspect]
     Active Substance: INSULIN DETEMIR
     Dosage: 18 DOSAGE FORMS DAILY; 300 | 3 IU / ML, 0?0?0?18,
     Route: 058
  2. METAMIZOL [Concomitant]
     Active Substance: METAMIZOLE SODIUM
     Dosage: 500 MILLIGRAM DAILY;   0?0?0?1,
     Route: 048
  3. EMPAGLIFLOZIN [Concomitant]
     Active Substance: EMPAGLIFLOZIN
     Dosage: 10 MILLIGRAM DAILY;  1?0?0?0
     Route: 048
  4. DALTEPARIN [Concomitant]
     Active Substance: DALTEPARIN
     Dosage: .5 DOSAGE FORMS DAILY; 10000|10 IU/ML, 0?0?0.5?0,
     Route: 058
  5. METFORMIN [Suspect]
     Active Substance: METFORMIN HYDROCHLORIDE
     Dosage: 1000 MG, PAUSED,
     Route: 048
  6. APIDRA [Suspect]
     Active Substance: INSULIN GLULISINE
     Dosage: 300 | 3 IU / ML, 13?7?8?0,
     Route: 058
  7. LISINOPRIL 10?1A PHARMA [Concomitant]
     Dosage: 10 MILLIGRAM DAILY;  1?0?0?0,
     Route: 048
  8. PANTOPRAZOL [Concomitant]
     Active Substance: PANTOPRAZOLE SODIUM
     Dosage: 40 MILLIGRAM DAILY;   0?0?1?0,
     Route: 048
  9. SIMVASTATIN. [Concomitant]
     Active Substance: SIMVASTATIN
     Dosage: 3 DOSAGE FORMS DAILY; 10 MG, 0?0?3?0,
     Route: 048

REACTIONS (5)
  - Decubitus ulcer [Unknown]
  - Pyrexia [Unknown]
  - Product prescribing error [Unknown]
  - Peripheral swelling [Unknown]
  - Erythema [Unknown]
